FAERS Safety Report 6497662-4 (Version None)
Quarter: 2009Q4

REPORT INFORMATION
  Report Type: 
  Country: None (occurrence: None)
  Receive Date: 20091215
  Receipt Date: 20091207
  Transmission Date: 20100525
  Serious: Yes (Other)
  Sender: FDA-Public Use
  Company Number: NL-JNJFOC-20091200279

PATIENT
  Sex: Male

DRUGS (12)
  1. NIZORAL [Suspect]
     Indication: FUNGAL INFECTION
     Dosage: 20 PCH
     Route: 061
  2. CROMOLYN SODIUM [Concomitant]
     Dosage: 6 TIMES DAILY ONE INHALATION
  3. AVODART [Concomitant]
     Route: 048
  4. OMNIC OCAS [Concomitant]
     Route: 048
  5. PERINDOPRIL TERT-BUTYLAMINE [Concomitant]
     Route: 048
  6. SINGULAIR [Concomitant]
     Route: 065
  7. SOTALOL HCL [Concomitant]
     Route: 065
  8. XYZAL [Concomitant]
     Route: 065
  9. ACENOCOUMAROL [Concomitant]
     Route: 065
  10. ALVESCO [Concomitant]
     Dosage: 160 MG/D 60 D1 INHALATION PER DAY
     Route: 065
  11. SPIRIVA [Concomitant]
     Dosage: ONE INHALATION PER DAY
  12. CROMOLYN SODIUM [Concomitant]
     Route: 031

REACTIONS (1)
  - INTERNATIONAL NORMALISED RATIO INCREASED [None]
